FAERS Safety Report 7788597-5 (Version None)
Quarter: 2011Q3

REPORT INFORMATION
  Report Type: 
  Country: None (occurrence: None)
  Receive Date: 20110928
  Receipt Date: 20060322
  Transmission Date: 20111222
  Serious: Yes (Other)
  Sender: FDA-Public Use
  Company Number: CH-1188102

PATIENT
  Age: 45 Year
  Sex: Female

DRUGS (7)
  1. MAXIDEX [Suspect]
     Dosage: (OPHTHALMIC)
     Route: 047
  2. PREDNISOLONE ACETATE [Suspect]
     Dosage: (OPHTHALMIC)
     Route: 047
  3. CEFUROXIME [Suspect]
     Dosage: (OPHTHALMIC)
     Route: 047
  4. DISODIUM EDETATE [Suspect]
     Dosage: (TID OPHTHALMIC)
     Route: 047
  5. OFLOXACIN [Suspect]
     Dosage: (TID OPHTHALMIC)
     Route: 047
  6. DEXASINE 0.1% (DEXASINE) [Suspect]
     Dosage: (TID OPHTHALMIC)
     Route: 047
  7. HYALURONIDASE [Suspect]
     Dosage: (VERY FREQENT OPHTHALMIC)
     Route: 047

REACTIONS (3)
  - CORNEAL THINNING [None]
  - CORNEAL TRANSPLANT [None]
  - CORNEAL DEPOSITS [None]
